FAERS Safety Report 9302741 (Version 1)
Quarter: 2013Q2

REPORT INFORMATION
  Report Type: Report from Study
  Country: JP (occurrence: JP)
  Receive Date: 20130522
  Receipt Date: 20130522
  Transmission Date: 20140414
  Serious: Yes (Other)
  Sender: FDA-Public Use
  Company Number: PHHY2011JP52751

PATIENT
  Age: 75 Year
  Sex: Female

DRUGS (5)
  1. AFINITOR [Suspect]
     Indication: METASTATIC RENAL CELL CARCINOMA
     Dosage: 5 MG, DAILY
     Route: 048
     Dates: start: 20110118, end: 20110308
  2. SUNITINIB MALATE [Concomitant]
     Indication: METASTATIC RENAL CELL CARCINOMA
     Dosage: 25 MG
     Route: 048
     Dates: start: 20100406, end: 20101228
  3. SORAFENIB TOSILATE [Concomitant]
     Indication: METASTATIC RENAL CELL CARCINOMA
     Dosage: 800 MG
     Route: 048
     Dates: start: 20080424, end: 20100330
  4. TAKEPRON [Concomitant]
     Dosage: 15 MG
     Route: 048
     Dates: start: 20100430
  5. THYRADIN-S [Concomitant]
     Dosage: 25 UG
     Route: 048
     Dates: start: 20101214

REACTIONS (2)
  - Malaise [Not Recovered/Not Resolved]
  - Haemoglobin decreased [Unknown]
